FAERS Safety Report 23285062 (Version 2)
Quarter: 2023Q4

REPORT INFORMATION
  Report Type: Spontaneous
  Country: CA (occurrence: CA)
  Receive Date: 20231211
  Receipt Date: 20231212
  Transmission Date: 20240110
  Serious: Yes (Other)
  Sender: FDA-Public Use
  Company Number: CA-002147023-NVSC2021CA067684

PATIENT
  Sex: Female

DRUGS (4)
  1. FULVESTRANT [Interacting]
     Active Substance: FULVESTRANT
     Indication: Product used for unknown indication
     Dosage: UNK
     Route: 065
  2. METFORMIN [Interacting]
     Active Substance: METFORMIN HYDROCHLORIDE
     Indication: Blood glucose increased
     Dosage: UNK (1G AT BREAST FAST 500MG AT LUNCH AND 1G AT DINNER)
     Route: 065
  3. PIQRAY [Interacting]
     Active Substance: ALPELISIB
     Dosage: 100 MG, QD (TABLET)
     Route: 065
  4. PIQRAY [Interacting]
     Active Substance: ALPELISIB
     Indication: Breast cancer metastatic
     Dosage: 200 MG, QD (STANDARD DOSE IS 300MG OD)
     Route: 048
     Dates: start: 20210310

REACTIONS (18)
  - Staphylococcal infection [Unknown]
  - Blood glucose increased [Unknown]
  - Breast cancer metastatic [Unknown]
  - Malignant neoplasm progression [Unknown]
  - Poor quality sleep [Unknown]
  - Contusion [Unknown]
  - Wound [Unknown]
  - Pain [Unknown]
  - Hypoaesthesia [Unknown]
  - Malaise [Unknown]
  - Stress [Unknown]
  - Peripheral swelling [Unknown]
  - Dry skin [Unknown]
  - Muscle spasms [Unknown]
  - Pruritus [Unknown]
  - Therapeutic response unexpected [Unknown]
  - Off label use [Unknown]
  - Drug interaction [Unknown]
